FAERS Safety Report 8326230-4 (Version None)
Quarter: 2012Q2

REPORT INFORMATION
  Report Type: 
  Country: None (occurrence: None)
  Receive Date: 20120427
  Receipt Date: 20120417
  Transmission Date: 20120825
  Serious: Yes (Other)
  Sender: FDA-Public Use
  Company Number: TPA2012A02175

PATIENT
  Age: 67 Year
  Sex: Male

DRUGS (1)
  1. PREVACID [Suspect]
     Indication: GASTROOESOPHAGEAL REFLUX DISEASE

REACTIONS (6)
  - GASTROINTESTINAL DISORDER [None]
  - BLOOD PRESSURE ABNORMAL [None]
  - POSTOPERATIVE HERNIA [None]
  - RHINORRHOEA [None]
  - GALLBLADDER DISORDER [None]
  - ABDOMINAL PAIN UPPER [None]
